FAERS Safety Report 4853064-5 (Version None)
Quarter: 2005Q4

REPORT INFORMATION
  Report Type: 
  Country: None (occurrence: None)
  Receive Date: 20051214
  Receipt Date: 20051019
  Transmission Date: 20060501
  Serious: Yes (Disabling, Other)
  Sender: FDA-Public Use
  Company Number: AU-AVENTIS-200519284GDDC

PATIENT
  Age: 45 Year
  Sex: Female

DRUGS (13)
  1. ARAVA [Suspect]
     Indication: RHEUMATOID ARTHRITIS
     Route: 048
     Dates: start: 20000329, end: 20051103
  2. HYDROXYCHLOROQUINE SULFATE [Concomitant]
     Dosage: DOSE: UNK
  3. THYROXINE [Concomitant]
     Dosage: DOSE: UNK
  4. SOMAC [Concomitant]
     Dosage: DOSE: UNK
  5. PREDNISONE [Concomitant]
     Dosage: DOSE: UNK
  6. DOTHEP [Concomitant]
     Dosage: DOSE: UNK
  7. KARVEA [Concomitant]
     Dosage: DOSE: UNK
  8. DIGOXIN [Concomitant]
     Dosage: DOSE: UNK
  9. DILATREND [Concomitant]
     Dosage: DOSE: UNK
  10. ORAL CONTRACEPTIVE PILL [Concomitant]
     Dosage: DOSE: UNK
  11. METOPROLOL [Concomitant]
     Indication: HYPERTENSION
  12. METOPROLOL [Concomitant]
  13. COVERSYL [Concomitant]
     Dosage: DOSE: UNK

REACTIONS (8)
  - CARDIAC FAILURE [None]
  - CONGESTIVE CARDIOMYOPATHY [None]
  - COUGH [None]
  - DYSPNOEA [None]
  - DYSPNOEA EXACERBATED [None]
  - FATIGUE [None]
  - MITRAL VALVE INCOMPETENCE [None]
  - VENTRICULAR HYPERTROPHY [None]
